FAERS Safety Report 4553013-3 (Version None)
Quarter: 2005Q1

REPORT INFORMATION
  Report Type: 
  Country: None (occurrence: None)
  Receive Date: 20050112
  Receipt Date: 20050112
  Transmission Date: 20050727
  Serious: No
  Sender: FDA-Public Use
  Company Number: None

PATIENT
  Age: 65 Year
  Sex: Female
  Weight: 82.5547 kg

DRUGS (3)
  1. XANAX [Suspect]
     Indication: DEPRESSION
     Dosage: 1 TID PRN
  2. LASIX [Suspect]
     Indication: CARDIAC FAILURE CONGESTIVE
     Dosage: 80 MG 1 DAILY
  3. LASIX [Suspect]
     Indication: CORONARY ARTERY DISEASE
     Dosage: 80 MG 1 DAILY

REACTIONS (4)
  - ABASIA [None]
  - NIGHTMARE [None]
  - PAIN IN EXTREMITY [None]
  - PHARMACEUTICAL PRODUCT COMPLAINT [None]
